FAERS Safety Report 5886277-4 (Version None)
Quarter: 2008Q3

REPORT INFORMATION
  Report Type: 
  Country: None (occurrence: None)
  Receive Date: 20080917
  Receipt Date: 20080908
  Transmission Date: 20090109
  Serious: Yes (Hospitalization)
  Sender: FDA-Public Use
  Company Number: A0709944A

PATIENT
  Age: 58 Year
  Sex: Male
  Weight: 77.3 kg

DRUGS (7)
  1. AVANDIA [Suspect]
     Dosage: 8MG PER DAY
     Route: 048
     Dates: start: 20010801, end: 20070612
  2. METOPROLOL TARTRATE [Concomitant]
     Dates: start: 20011103
  3. AMARYL [Concomitant]
  4. TRICOR [Concomitant]
  5. ZOCOR [Concomitant]
  6. CRESTOR [Concomitant]
  7. VYTORIN [Concomitant]

REACTIONS (1)
  - MYOCARDIAL INFARCTION [None]
